FAERS Safety Report 12375114 (Version 2)
Quarter: 2018Q2

REPORT INFORMATION
  Report Type: Spontaneous
  Country: GB (occurrence: GB)
  Receive Date: 20160517
  Receipt Date: 20180404
  Transmission Date: 20180711
  Serious: Yes (Other)
  Sender: FDA-Public Use
  Company Number: PHFR2016GB003875

PATIENT
  Sex: Male

DRUGS (1)
  1. ELTROMBOPAG [Suspect]
     Active Substance: ELTROMBOPAG
     Indication: IMMUNE THROMBOCYTOPENIC PURPURA
     Dosage: 75 MG, QHS (JUST BEFORE BED)
     Route: 048

REACTIONS (6)
  - Contusion [Unknown]
  - Gingival bleeding [Unknown]
  - Skeletal injury [Unknown]
  - Platelet count decreased [Unknown]
  - Bone disorder [Unknown]
  - Fractured sacrum [Unknown]
